FAERS Safety Report 18408831 (Version 3)
Quarter: 2021Q1

REPORT INFORMATION
  Report Type: Spontaneous
  Country: CA (occurrence: CA)
  Receive Date: 20201020
  Receipt Date: 20210120
  Transmission Date: 20210419
  Serious: Yes (Other)
  Sender: FDA-Public Use
  Company Number: CA-CELLTRION INC.-2017CA009505

PATIENT

DRUGS (24)
  1. INFLECTRA [Suspect]
     Active Substance: INFLIXIMAB-DYYB
     Dosage: 300 MG,  (EVERY 6 WEEKS)
     Route: 042
     Dates: start: 20200326
  2. INFLECTRA [Suspect]
     Active Substance: INFLIXIMAB-DYYB
     Dosage: 300 MG, (EVERY 6 WEEKS)
     Route: 042
     Dates: start: 20180111, end: 2018
  3. INFLECTRA [Suspect]
     Active Substance: INFLIXIMAB-DYYB
     Dosage: 300 MG, (EVERY 6 WEEKS)
     Route: 042
     Dates: start: 20180627
  4. INFLECTRA [Suspect]
     Active Substance: INFLIXIMAB-DYYB
     Dosage: 300 MG,  (EVERY 6 WEEKS)
     Route: 042
     Dates: start: 20210113
  5. METHOTREXATE. [Concomitant]
     Active Substance: METHOTREXATE
     Indication: RHEUMATOID ARTHRITIS
     Dosage: 25 MG, WEEKLY
     Route: 048
  6. INFLECTRA [Suspect]
     Active Substance: INFLIXIMAB-DYYB
     Dosage: 300 MG, (EVERY 6 WEEKS)
     Route: 042
     Dates: start: 20180808
  7. INFLECTRA [Suspect]
     Active Substance: INFLIXIMAB-DYYB
     Dosage: 300 MG,  (EVERY 6 WEEKS)
     Route: 042
     Dates: start: 20181105
  8. INFLECTRA [Suspect]
     Active Substance: INFLIXIMAB-DYYB
     Dosage: 300 MG,  (EVERY 6 WEEKS)
     Route: 042
     Dates: start: 20200727
  9. METHOTREXATE. [Concomitant]
     Active Substance: METHOTREXATE
     Dosage: 25 MG, WEEKLY
     Route: 065
  10. INFLECTRA [Suspect]
     Active Substance: INFLIXIMAB-DYYB
     Dosage: 300 MG, (EVERY 6 WEEKS)
     Route: 042
     Dates: start: 20170714, end: 2018
  11. INFLECTRA [Suspect]
     Active Substance: INFLIXIMAB-DYYB
     Dosage: 300 MG,  (EVERY 6 WEEKS)
     Route: 042
     Dates: start: 20190718
  12. INFLECTRA [Suspect]
     Active Substance: INFLIXIMAB-DYYB
     Indication: RHEUMATOID ARTHRITIS
     Dosage: 300 MG AT 0, 2, 6 WEEKS THEN EVERY 8 WEEKS)
     Route: 042
     Dates: start: 20170714, end: 20171130
  13. INFLECTRA [Suspect]
     Active Substance: INFLIXIMAB-DYYB
     Dosage: 300 MG,  (EVERY 6 WEEKS)
     Route: 042
     Dates: start: 20190606
  14. INFLECTRA [Suspect]
     Active Substance: INFLIXIMAB-DYYB
     Dosage: 300 MG,  (EVERY 6 WEEKS)
     Route: 042
     Dates: start: 20190829
  15. INFLECTRA [Suspect]
     Active Substance: INFLIXIMAB-DYYB
     Dosage: 300 MG,  (EVERY 6 WEEKS)
     Route: 042
     Dates: start: 20200213
  16. INFLECTRA [Suspect]
     Active Substance: INFLIXIMAB-DYYB
     Dosage: 300 MG,  (EVERY 6 WEEKS)
     Route: 042
     Dates: start: 20201202
  17. INFLECTRA [Suspect]
     Active Substance: INFLIXIMAB-DYYB
     Dosage: 300 MG,  (EVERY 6 WEEKS)
     Route: 042
     Dates: start: 20190312
  18. INFLECTRA [Suspect]
     Active Substance: INFLIXIMAB-DYYB
     Dosage: 300 MG,  (EVERY 6 WEEKS)
     Route: 042
     Dates: start: 20200213
  19. INFLECTRA [Suspect]
     Active Substance: INFLIXIMAB-DYYB
     Dosage: 300 MG,  (EVERY 6 WEEKS)
     Route: 042
     Dates: start: 20200908
  20. INFLECTRA [Suspect]
     Active Substance: INFLIXIMAB-DYYB
     Dosage: 300 MG,  (EVERY 6 WEEKS)
     Route: 042
     Dates: start: 20180919
  21. INFLECTRA [Suspect]
     Active Substance: INFLIXIMAB-DYYB
     Dosage: 300 MG,  (EVERY 6 WEEKS)
     Route: 042
     Dates: start: 20190129
  22. INFLECTRA [Suspect]
     Active Substance: INFLIXIMAB-DYYB
     Dosage: 300 MG,  (EVERY 6 WEEKS)
     Route: 042
     Dates: start: 20190829
  23. INFLECTRA [Suspect]
     Active Substance: INFLIXIMAB-DYYB
     Dosage: 300 MG,  (EVERY 6 WEEKS)
     Route: 042
     Dates: start: 20200508
  24. INFLECTRA [Suspect]
     Active Substance: INFLIXIMAB-DYYB
     Dosage: 300 MG,  (EVERY 6 WEEKS)
     Route: 042
     Dates: start: 20200618

REACTIONS (23)
  - Dysphonia [Recovering/Resolving]
  - Condition aggravated [Unknown]
  - Intervertebral disc protrusion [Unknown]
  - Nausea [Unknown]
  - Peripheral swelling [Unknown]
  - Therapeutic response shortened [Unknown]
  - Off label use [Unknown]
  - Cough [Recovering/Resolving]
  - Cervical spinal stenosis [Unknown]
  - Intentional product use issue [Unknown]
  - Nasopharyngitis [Recovering/Resolving]
  - Body temperature decreased [Unknown]
  - Intervertebral disc space narrowing [Unknown]
  - Osteoarthritis [Not Recovered/Not Resolved]
  - Spinal osteoarthritis [Unknown]
  - Carpal tunnel syndrome [Unknown]
  - Blood pressure fluctuation [Unknown]
  - Hypertension [Unknown]
  - Off label use [Unknown]
  - Abdominal pain upper [Unknown]
  - Retching [Unknown]
  - Upper respiratory tract infection [Recovering/Resolving]
  - Heart rate decreased [Unknown]

NARRATIVE: CASE EVENT DATE: 20170714
